FAERS Safety Report 23999536 (Version 1)
Quarter: 2024Q2

REPORT INFORMATION
  Report Type: Spontaneous
  Country: CN (occurrence: CN)
  Receive Date: 20240621
  Receipt Date: 20240621
  Transmission Date: 20240715
  Serious: Yes (Other)
  Sender: FDA-Public Use
  Company Number: CN-PFIZER INC-PV202400080419

PATIENT
  Age: 67 Year
  Sex: Female
  Weight: 65 kg

DRUGS (2)
  1. CYTARABINE [Suspect]
     Active Substance: CYTARABINE
     Indication: Acute leukaemia
     Dosage: 1.5 G, 2X/DAY
     Route: 041
     Dates: start: 20240605, end: 20240605
  2. SODIUM CHLORIDE [Concomitant]
     Active Substance: SODIUM CHLORIDE
     Indication: Vehicle solution use
     Dosage: 500 ML, 2X/DAY
     Route: 041
     Dates: start: 20240605, end: 20240605

REACTIONS (6)
  - Hypertension [Recovering/Resolving]
  - Palpitations [Recovering/Resolving]
  - Tremor [Recovering/Resolving]
  - Thirst [Recovering/Resolving]
  - Electrocardiogram QT prolonged [Unknown]
  - Electrocardiogram ST-T segment abnormal [Unknown]

NARRATIVE: CASE EVENT DATE: 20240605
